FAERS Safety Report 5115039-0 (Version None)
Quarter: 2006Q3

REPORT INFORMATION
  Report Type: 
  Country: None (occurrence: None)
  Receive Date: 20060922
  Receipt Date: 20060918
  Transmission Date: 20061208
  Serious: No
  Sender: FDA-Public Use
  Company Number: TAP2006Q01578

PATIENT
  Age: 59 Year
  Sex: Female

DRUGS (4)
  1. PREVACID [Suspect]
     Indication: GASTROOESOPHAGEAL REFLUX DISEASE
     Dosage: SEE IMAGE
     Route: 048
     Dates: start: 20060718, end: 20060818
  2. PREVACID [Suspect]
     Indication: GASTROOESOPHAGEAL REFLUX DISEASE
     Dosage: SEE IMAGE
     Route: 048
     Dates: start: 20060819, end: 20060828
  3. GLUCOPHAGE [Concomitant]
  4. GLUCOTROL [Concomitant]

REACTIONS (6)
  - ABDOMINAL PAIN [None]
  - BLISTER [None]
  - BLOOD GLUCOSE INCREASED [None]
  - DIARRHOEA [None]
  - PAIN [None]
  - SKIN ULCER [None]
